FAERS Safety Report 7597746-3 (Version None)
Quarter: 2011Q3

REPORT INFORMATION
  Report Type: 
  Country: None (occurrence: None)
  Receive Date: 20110708
  Receipt Date: 20110629
  Transmission Date: 20111222
  Serious: Yes (Other)
  Sender: FDA-Public Use
  Company Number: FR-VIIV HEALTHCARE LIMITED-B0729549A

PATIENT
  Sex: Male

DRUGS (5)
  1. ABACAVIR SULFATE AND LAMIVUDINE [Suspect]
     Indication: HIV INFECTION
     Dosage: 1TAB PER DAY
     Route: 048
     Dates: start: 20050704
  2. VIRAMUNE [Suspect]
     Indication: HIV INFECTION
     Dosage: 200MG TWICE PER DAY
     Route: 048
     Dates: start: 20100712, end: 20101122
  3. UVEDOSE [Concomitant]
     Dosage: 1UNIT MONTHLY
     Route: 048
  4. CRESTOR [Concomitant]
     Dosage: 10MG PER DAY
     Route: 048
  5. CAPTOPRIL [Concomitant]
     Dosage: 50MG PER DAY
     Route: 048

REACTIONS (1)
  - LIPODYSTROPHY ACQUIRED [None]
